FAERS Safety Report 19949418 (Version 1)
Quarter: 2021Q4

REPORT INFORMATION
  Report Type: Spontaneous
  Country: US (occurrence: US)
  Receive Date: 20211012
  Receipt Date: 20211012
  Transmission Date: 20220304
  Serious: Yes (Hospitalization)
  Sender: FDA-Public Use
  Company Number: None

PATIENT
  Age: 16 Year
  Sex: Male

DRUGS (1)
  1. ABATACEPT [Suspect]
     Active Substance: ABATACEPT
     Route: 042
     Dates: start: 20210303, end: 20210801

REACTIONS (4)
  - Cough [None]
  - Pyrexia [None]
  - Lung consolidation [None]
  - Staphylococcal infection [None]

NARRATIVE: CASE EVENT DATE: 20211002
